FAERS Safety Report 7084402-3 (Version None)
Quarter: 2010Q4

REPORT INFORMATION
  Report Type: 
  Country: None (occurrence: None)
  Receive Date: 20101104
  Receipt Date: 20101006
  Transmission Date: 20110411
  Serious: No
  Sender: FDA-Public Use
  Company Number: US-PFIZER INC-2010100383

PATIENT
  Sex: Male

DRUGS (2)
  1. AZITHROMYCIN [Suspect]
     Indication: RESPIRATORY TRACT INFECTION
     Dosage: 7.5 ML, DAILY
     Route: 048
     Dates: start: 20100809
  2. AZITHROMYCIN [Suspect]
     Indication: PNEUMONIA

REACTIONS (2)
  - DIARRHOEA [None]
  - DYSGEUSIA [None]
